FAERS Safety Report 16706730 (Version 1)
Quarter: 2019Q3

REPORT INFORMATION
  Report Type: Spontaneous
  Country: US (occurrence: US)
  Receive Date: 20190628
  Receipt Date: 20190628
  Transmission Date: 20191004
  Serious: Yes (Disabling, Other)
  Sender: FDA-Public Use
  Company Number: None

PATIENT
  Age: 53 Year
  Sex: Male

DRUGS (2)
  1. GABAPENTIN 100MG CAP [Suspect]
     Active Substance: GABAPENTIN
     Indication: NEURALGIA
     Dosage: ?          QUANTITY:1 DF DOSAGE FORM;?
     Route: 048
     Dates: start: 20181123, end: 20190427
  2. GABAPENTIN 100MG CAP [Suspect]
     Active Substance: GABAPENTIN
     Indication: HERPES ZOSTER
     Dosage: ?          QUANTITY:1 DF DOSAGE FORM;?
     Route: 048
     Dates: start: 20181123, end: 20190427

REACTIONS (6)
  - Feeling abnormal [None]
  - Major depression [None]
  - Imprisonment [None]
  - Toxicity to various agents [None]
  - Impaired quality of life [None]
  - Mental disorder [None]

NARRATIVE: CASE EVENT DATE: 20190427
